FAERS Safety Report 9477986 (Version 1)
Quarter: 2013Q3

REPORT INFORMATION
  Report Type: Report from Study
  Country: BR (occurrence: BR)
  Receive Date: 20130827
  Receipt Date: 20130827
  Transmission Date: 20140515
  Serious: Yes (Hospitalization)
  Sender: FDA-Public Use
  Company Number: PHHY2013BR091515

PATIENT
  Age: 46 Year
  Sex: Male

DRUGS (11)
  1. MYCOPHENOLIC ACID [Suspect]
     Indication: RENAL TRANSPLANT
     Dosage: UNK UKN, UNK
  2. MYCOPHENOLIC ACID [Suspect]
     Dosage: 1440 MG, DAILY
  3. EVEROLIMUS [Suspect]
     Indication: RENAL TRANSPLANT
     Dosage: UNK UKN, UNK
  4. EVEROLIMUS [Suspect]
     Dosage: 2 MG, DAILY
  5. TACROLIMUS [Suspect]
     Indication: RENAL TRANSPLANT
     Dosage: UNK UKN, UNK
  6. PREDNISONE [Suspect]
     Indication: RENAL TRANSPLANT
     Dosage: UNK UKN, UNK
  7. PREDNISONE [Suspect]
     Dosage: 5 MG, DAILY
  8. ASA [Concomitant]
     Dosage: UNK UKN, UNK
  9. ATENOLOL [Concomitant]
     Dosage: UNK UKN, UNK
  10. SIMVASTATIN [Concomitant]
     Dosage: UNK UKN, UNK
  11. OMEPRAZOLE [Concomitant]
     Dosage: UNK UKN, UNK

REACTIONS (9)
  - Ischaemic stroke [Unknown]
  - Renal impairment [Unknown]
  - Blood creatinine increased [Unknown]
  - Blood lactate dehydrogenase increased [Unknown]
  - Posterior reversible encephalopathy syndrome [Unknown]
  - Grand mal convulsion [Unknown]
  - Hemiparesis [Unknown]
  - Myoclonus [Unknown]
  - Anaemia [Unknown]
